FAERS Safety Report 9770212 (Version 1)
Quarter: 2013Q4

REPORT INFORMATION
  Report Type: Spontaneous
  Country: DE (occurrence: DE)
  Receive Date: 20131218
  Receipt Date: 20131218
  Transmission Date: 20140711
  Serious: Yes (Other)
  Sender: FDA-Public Use
  Company Number: DE-UCBSA-105768

PATIENT
  Age: 75 Year
  Sex: Female

DRUGS (2)
  1. NEUPRO [Suspect]
     Indication: RESTLESS LEGS SYNDROME
  2. NEUPRO [Suspect]
     Indication: RESTLESS LEGS SYNDROME
     Dosage: UPTITRATION DOSE
     Dates: start: 201311

REACTIONS (2)
  - Loss of consciousness [Unknown]
  - Road traffic accident [Unknown]
